FAERS Safety Report 10652706 (Version 2)
Quarter: 2014Q4

REPORT INFORMATION
  Report Type: Spontaneous
  Country: GR (occurrence: GR)
  Receive Date: 20141215
  Receipt Date: 20141215
  Transmission Date: 20150529
  Serious: Yes (Other)
  Sender: FDA-Public Use
  Company Number: GR-EMD SERONO-7334391

PATIENT
  Age: 40 Year
  Sex: Female
  Weight: 52 kg

DRUGS (2)
  1. CETROTIDE                          /01453601/ [Concomitant]
     Indication: IN VITRO FERTILISATION
     Dosage: 0.25 (UNITS UNSPECIFIED) DAILY
     Route: 058
     Dates: start: 20141117, end: 20141120
  2. GONAL-F [Suspect]
     Active Substance: FOLLITROPIN
     Indication: IN VITRO FERTILISATION
     Dosage: 150 (UNITS UNSPECIFIED) DAILY
     Route: 058
     Dates: start: 20141113, end: 20141119

REACTIONS (3)
  - Progesterone increased [Not Recovered/Not Resolved]
  - Oestradiol decreased [Not Recovered/Not Resolved]
  - Drug ineffective [Unknown]

NARRATIVE: CASE EVENT DATE: 20141113
